FAERS Safety Report 15408883 (Version 1)
Quarter: 2018Q3

REPORT INFORMATION
  Report Type: Spontaneous
  Country: GB (occurrence: GB)
  Receive Date: 20180920
  Receipt Date: 20180920
  Transmission Date: 20181010
  Serious: Yes (Other)
  Sender: FDA-Public Use
  Company Number: GB-TEVA-2018-GB-956623

PATIENT
  Age: 56 Year
  Sex: Female
  Weight: 101.6 kg

DRUGS (6)
  1. CLONAZEPAM. [Concomitant]
     Active Substance: CLONAZEPAM
     Dates: start: 20180717
  2. ACETYLSALICYLIC ACID [Concomitant]
     Active Substance: ASPIRIN
     Dates: start: 20180703
  3. DAKTACORT [Concomitant]
     Active Substance: HYDROCORTISONE\MICONAZOLE NITRATE
     Dosage: APPLY. 2%/1%
     Dates: start: 20180821
  4. MICONAZOLE. [Concomitant]
     Active Substance: MICONAZOLE
     Dosage: APPLY?20MG/G
     Route: 048
     Dates: start: 20180821
  5. EUMOVATE [Concomitant]
     Active Substance: CLOBETASONE BUTYRATE
     Dosage: APPLY
     Dates: start: 20180703
  6. VENLAFAXINE [Suspect]
     Active Substance: VENLAFAXINE HYDROCHLORIDE
     Dosage: TO BE TAKEN ALONGSIDE 37.5MG TABLET, TOTAL MORNING DOSE IS 112.5MG
     Route: 048
     Dates: start: 20180529, end: 20180821

REACTIONS (2)
  - Haematochezia [Unknown]
  - Skin exfoliation [Unknown]
